FAERS Safety Report 25989462 (Version 1)
Quarter: 2025Q4

REPORT INFORMATION
  Report Type: Spontaneous
  Country: EU (occurrence: EU)
  Receive Date: 20251103
  Receipt Date: 20251103
  Transmission Date: 20260118
  Serious: Yes (Death, Hospitalization, Other)
  Sender: LEGACY PHARMACEUTICAL PACKAGING
  Company Number: EU-LEGACY PHARMA INC. SEZC-LGP202510-000307

PATIENT
  Age: 26 Year
  Sex: Female
  Weight: 50 kg

DRUGS (6)
  1. PAROXETINE MESYLATE [Suspect]
     Active Substance: PAROXETINE MESYLATE
     Indication: Depression
     Dosage: 80 MILLIGRAM/KILOGRAM, UNK
     Route: 065
  2. AGOMELATINE [Suspect]
     Active Substance: AGOMELATINE
     Indication: Product used for unknown indication
     Dosage: 63 MILLIGRAM/KILOGRAM, UNK
     Route: 065
  3. ACETAMINOPHEN [Suspect]
     Active Substance: ACETAMINOPHEN
     Indication: Product used for unknown indication
     Dosage: 160 MILLIGRAM/KILOGRAM, UNK
     Route: 065
  4. ASPIRIN [Suspect]
     Active Substance: ASPIRIN
     Indication: Product used for unknown indication
     Dosage: 100 MILLIGRAM/KILOGRAM, UNK
     Route: 065
  5. CAFFEINE [Suspect]
     Active Substance: CAFFEINE
     Indication: Product used for unknown indication
     Dosage: 20 MILLIGRAM/KILOGRAM, UNK
     Route: 065
  6. IBUPROFEN [Suspect]
     Active Substance: IBUPROFEN
     Indication: Product used for unknown indication
     Dosage: 504 MILLIGRAM/KILOGRAM, UNK
     Route: 065

REACTIONS (17)
  - Pneumonia aspiration [Unknown]
  - Acute respiratory distress syndrome [Fatal]
  - Serotonin syndrome [Fatal]
  - Respiratory failure [Unknown]
  - Suicide attempt [Fatal]
  - Overdose [Unknown]
  - Poisoning deliberate [Unknown]
  - Sinus tachycardia [Unknown]
  - Somnolence [Unknown]
  - Disorientation [Unknown]
  - Coma scale abnormal [Unknown]
  - Delirium [Unknown]
  - Agitation [Unknown]
  - Clonus [Unknown]
  - Condition aggravated [Unknown]
  - Drug level increased [Unknown]
  - Product use in unapproved indication [Unknown]
